FAERS Safety Report 12053055 (Version 1)
Quarter: 2016Q1

REPORT INFORMATION
  Report Type: Spontaneous
  Country: US (occurrence: US)
  Receive Date: 20160209
  Receipt Date: 20160209
  Transmission Date: 20160526
  Serious: No
  Sender: FDA-Public Use
  Company Number: US-ENDO PHARMACEUTICALS INC.-2015-003995

PATIENT
  Sex: Male
  Weight: 84.9 kg

DRUGS (5)
  1. TESTOSTERONE GEL [Suspect]
     Active Substance: TESTOSTERONE
     Route: 061
     Dates: start: 2014, end: 2014
  2. TESTOSTERONE GEL [Suspect]
     Active Substance: TESTOSTERONE
     Route: 061
     Dates: start: 2015
  3. TESTOSTERONE GEL [Suspect]
     Active Substance: TESTOSTERONE
     Indication: BLOOD TESTOSTERONE DECREASED
     Route: 061
     Dates: start: 2014, end: 2014
  4. TESTOSTERONE GEL [Suspect]
     Active Substance: TESTOSTERONE
     Route: 061
     Dates: start: 201509
  5. TESTOSTERONE GEL [Suspect]
     Active Substance: TESTOSTERONE
     Route: 061
     Dates: start: 2014, end: 2015

REACTIONS (2)
  - Fatigue [Recovered/Resolved]
  - Libido decreased [Recovered/Resolved]

NARRATIVE: CASE EVENT DATE: 2015
